FAERS Safety Report 5393593-1 (Version None)
Quarter: 2007Q3

REPORT INFORMATION
  Report Type: 
  Country: None (occurrence: None)
  Receive Date: 20070723
  Receipt Date: 20060918
  Transmission Date: 20080115
  Serious: No
  Sender: FDA-Public Use
  Company Number: A0620546A

PATIENT
  Age: 72 Year
  Sex: Female

DRUGS (11)
  1. AVANDIA [Suspect]
     Dosage: 4MG PER DAY
     Route: 048
     Dates: start: 20060717, end: 20060901
  2. DIGITEK [Concomitant]
  3. LASIX [Concomitant]
  4. GLUBICIDE [Concomitant]
  5. POTASSIUM CHLORIDE [Concomitant]
  6. PROTONIX [Concomitant]
  7. SYNTHROID [Concomitant]
  8. TOPROL-XL [Concomitant]
  9. CRESTOR [Concomitant]
  10. DIOVAN [Concomitant]
  11. OXYCODONE WITH APAP [Concomitant]

REACTIONS (2)
  - FLUID RETENTION [None]
  - PALPITATIONS [None]
